FAERS Safety Report 4931644-6 (Version None)
Quarter: 2006Q1

REPORT INFORMATION
  Report Type: 
  Country: None (occurrence: None)
  Receive Date: 20060303
  Receipt Date: 20051114
  Transmission Date: 20060701
  Serious: No
  Sender: FDA-Public Use
  Company Number: US-BRISTOL-MYERS SQUIBB COMPANY-13179460

PATIENT
  Age: 64 Year
  Sex: Male
  Weight: 93 kg

DRUGS (3)
  1. ERBITUX [Suspect]
     Indication: COLON CANCER
     Dosage: THERAPY START DATE 12-SEP-05.
     Route: 042
     Dates: start: 20051114, end: 20051114
  2. BENADRYL [Concomitant]
     Indication: PREMEDICATION
     Route: 042
     Dates: start: 20051114, end: 20051114
  3. TYLENOL (CAPLET) [Concomitant]
     Indication: PREMEDICATION
     Route: 048
     Dates: start: 20051114, end: 20051114

REACTIONS (1)
  - MEDICATION ERROR [None]
